FAERS Safety Report 17105517 (Version 2)
Quarter: 2020Q2

REPORT INFORMATION
  Report Type: Report from Study
  Country: NL (occurrence: NL)
  Receive Date: 20191203
  Receipt Date: 20200428
  Transmission Date: 20200713
  Serious: Yes (Hospitalization)
  Sender: FDA-Public Use
  Company Number: NL-ROCHE-2477519

PATIENT
  Age: 23 Year
  Sex: Male

DRUGS (8)
  1. DIAZEPAM. [Suspect]
     Active Substance: DIAZEPAM
     Indication: ANXIETY
     Dosage: TAPERED ABOUT -20% PER DAY
     Route: 065
  2. DIAZEPAM. [Suspect]
     Active Substance: DIAZEPAM
     Dosage: START DOSAGE
     Route: 065
  3. DIAZEPAM. [Suspect]
     Active Substance: DIAZEPAM
     Dosage: REDUCED TO 9 MG/DAY
     Route: 065
  4. PHENIBUT [Suspect]
     Active Substance: DIETARY SUPPLEMENT
     Indication: INSOMNIA
  5. DIAZEPAM. [Suspect]
     Active Substance: DIAZEPAM
     Route: 065
  6. DIAZEPAM. [Suspect]
     Active Substance: DIAZEPAM
     Route: 065
  7. PREGABALIN. [Concomitant]
     Active Substance: PREGABALIN
  8. PHENIBUT [Suspect]
     Active Substance: DIETARY SUPPLEMENT
     Indication: EUPHORIC MOOD
     Dosage: 11 TO 12 G 3 TIMES A DAY (WITH A MAXIMUM OF 34,5G PER DAY)
     Route: 065

REACTIONS (21)
  - Psychomotor hyperactivity [Recovered/Resolved]
  - Irritability [Recovered/Resolved]
  - Myalgia [Recovered/Resolved]
  - Drug dependence [Recovered/Resolved]
  - Restlessness [Recovered/Resolved]
  - Decreased appetite [Recovered/Resolved]
  - Withdrawal syndrome [Recovered/Resolved]
  - Headache [Recovered/Resolved]
  - Tension [Recovered/Resolved]
  - Influenza like illness [Recovered/Resolved]
  - Delusion [Recovered/Resolved]
  - Insomnia [Recovered/Resolved]
  - Trismus [Recovered/Resolved]
  - Depersonalisation/derealisation disorder [Recovered/Resolved]
  - Abnormal dreams [Recovered/Resolved]
  - Depressed mood [Recovered/Resolved]
  - Fear [Recovered/Resolved]
  - Anxiety [Recovered/Resolved]
  - Dysphoria [Recovered/Resolved]
  - Drug abuse [Unknown]
  - Body temperature fluctuation [Recovered/Resolved]
